FAERS Safety Report 7869556-0 (Version None)
Quarter: 2011Q4

REPORT INFORMATION
  Report Type: 
  Country: None (occurrence: None)
  Receive Date: 20111027
  Receipt Date: 20110913
  Transmission Date: 20120403
  Serious: Yes (Life-Threatening, Hospitalization, Other)
  Sender: FDA-Public Use
  Company Number: AUR-APL-2011-04310

PATIENT
  Age: 57 Year
  Sex: Female

DRUGS (20)
  1. FENTANYL [Suspect]
     Indication: PRODUCT USED FOR UNKNOWN INDICATION
     Dosage: ORAL
     Route: 048
  2. SYNTHROID [Concomitant]
  3. ATENOLOL [Suspect]
     Indication: PRODUCT USED FOR UNKNOWN INDICATION
     Dosage: ORAL
     Route: 048
  4. HYDROCODONE BITARTRATE [Concomitant]
  5. METOPROLOL TARTRATE [Suspect]
     Indication: PRODUCT USED FOR UNKNOWN INDICATION
  6. LORAZEPAM [Concomitant]
  7. NITROSTAT [Concomitant]
  8. ASPIRIN [Concomitant]
  9. SIMVASTATIN [Concomitant]
  10. GOLYTELY (GOLYTELY /00747901/) [Concomitant]
  11. LISINOPRIL [Suspect]
     Indication: PRODUCT USED FOR UNKNOWN INDICATION
     Dosage: ORAL
     Route: 048
  12. ATACAND [Suspect]
     Indication: PRODUCT USED FOR UNKNOWN INDICATION
     Dosage: (16 MG,1 D),ORAL ; (32 MG,1 D),ORAL ; (32 MG,1 D),ORAL
     Route: 048
     Dates: start: 20101109, end: 20101129
  13. ATACAND [Suspect]
     Indication: PRODUCT USED FOR UNKNOWN INDICATION
     Dosage: (16 MG,1 D),ORAL ; (32 MG,1 D),ORAL ; (32 MG,1 D),ORAL
     Route: 048
     Dates: start: 20110111, end: 20110414
  14. ATACAND [Suspect]
     Indication: PRODUCT USED FOR UNKNOWN INDICATION
     Dosage: (16 MG,1 D),ORAL ; (32 MG,1 D),ORAL ; (32 MG,1 D),ORAL
     Route: 048
     Dates: start: 20101019
  15. OMEPRAZOLE [Concomitant]
  16. RANEXA [Concomitant]
  17. HYDROCORTISONE ACETATE (HYDROCORTISONE ACETATE) [Concomitant]
  18. ANUSOL-HC (HYDROCORTISONE ACETATE) [Concomitant]
  19. LEVOTHYROXINE SODIUM [Concomitant]
  20. LASIX [Concomitant]

REACTIONS (17)
  - ABDOMINAL DISTENSION [None]
  - ANGINA PECTORIS [None]
  - BRADYCARDIA [None]
  - HYPOTENSION [None]
  - DEHYDRATION [None]
  - FLATULENCE [None]
  - BLOOD COUNT ABNORMAL [None]
  - DRUG HYPERSENSITIVITY [None]
  - CAROTID ARTERY OCCLUSION [None]
  - CEREBROVASCULAR ACCIDENT [None]
  - COUGH [None]
  - RENAL DISORDER [None]
  - COLITIS ULCERATIVE [None]
  - LACTOSE INTOLERANCE [None]
  - PRURITUS [None]
  - DYSPNOEA [None]
  - ABDOMINAL PAIN [None]
